FAERS Safety Report 25807868 (Version 4)
Quarter: 2025Q4

REPORT INFORMATION
  Report Type: Report from Study
  Country: CA (occurrence: CA)
  Receive Date: 20250916
  Receipt Date: 20251027
  Transmission Date: 20260118
  Serious: Yes (Other)
  Sender: TAKEDA
  Company Number: CA-TAKEDA-2025TUS055387

PATIENT
  Age: 40 Year
  Sex: Female

DRUGS (2)
  1. VEDOLIZUMAB [Suspect]
     Active Substance: VEDOLIZUMAB
     Indication: Crohn^s disease
     Dosage: 300 MILLIGRAM
  2. VEDOLIZUMAB [Suspect]
     Active Substance: VEDOLIZUMAB
     Indication: Crohn^s disease
     Dosage: 108 MILLIGRAM, Q2WEEKS
     Dates: start: 20250707

REACTIONS (11)
  - Haematochezia [Unknown]
  - Abdominal discomfort [Unknown]
  - Abdominal mass [Unknown]
  - Abdominal tenderness [Unknown]
  - Rash papular [Unknown]
  - Mucous stools [Unknown]
  - Malaise [Unknown]
  - Constipation [Unknown]
  - Anal fissure [Unknown]
  - Flatulence [Unknown]
  - Pregnancy [Not Recovered/Not Resolved]
